FAERS Safety Report 15153666 (Version 3)
Quarter: 2020Q2

REPORT INFORMATION
  Report Type: Report from Study
  Country: CA (occurrence: CA)
  Receive Date: 20180717
  Receipt Date: 20200407
  Transmission Date: 20200713
  Serious: Yes (Hospitalization, Other)
  Sender: FDA-Public Use
  Company Number: CA-GLAXOSMITHKLINE-CA2018GSK124613

PATIENT
  Sex: Female

DRUGS (2)
  1. SALBUTAMOL SULPHATE [Suspect]
     Active Substance: ALBUTEROL SULFATE
     Indication: ASTHMA
     Dosage: UNK
  2. NUCALA [Concomitant]
     Active Substance: MEPOLIZUMAB
     Indication: ASTHMA
     Dosage: 100 MG, Z (MONTHLY)
     Route: 042
     Dates: start: 20170707

REACTIONS (6)
  - Dyspnoea [Recovering/Resolving]
  - Hospitalisation [Unknown]
  - Sleep disorder due to a general medical condition [Recovered/Resolved]
  - Asthma [Recovering/Resolving]
  - Wheezing [Recovered/Resolved]
  - Loss of personal independence in daily activities [Recovering/Resolving]
